FAERS Safety Report 9892265 (Version 2)
Quarter: 2014Q1

REPORT INFORMATION
  Report Type: Spontaneous
  Country: US (occurrence: BR)
  Receive Date: 20140212
  Receipt Date: 20140219
  Transmission Date: 20141002
  Serious: Yes (Disabling)
  Sender: FDA-Public Use
  Company Number: BR-FRI-1000054161

PATIENT
  Age: 53 Year
  Sex: Female

DRUGS (1)
  1. ROFLUMILAST [Suspect]
     Indication: CHRONIC OBSTRUCTIVE PULMONARY DISEASE
     Dosage: 250 MCG
     Route: 048

REACTIONS (2)
  - Asthenia [Recovered/Resolved]
  - Wrong technique in drug usage process [Recovered/Resolved]
